FAERS Safety Report 12475603 (Version 5)
Quarter: 2017Q2

REPORT INFORMATION
  Report Type: Spontaneous
  Country: JP (occurrence: JP)
  Receive Date: 20160617
  Receipt Date: 20170601
  Transmission Date: 20170830
  Serious: Yes (Hospitalization, Other)
  Sender: FDA-Public Use
  Company Number: JP-009507513-1606JPN005356

PATIENT
  Age: 73 Year
  Sex: Male
  Weight: 67 kg

DRUGS (92)
  1. LACTEC [Concomitant]
     Active Substance: CALCIUM CHLORIDE ANHYDROUS\POTASSIUM CHLORIDE\SODIUM CHLORIDE\SODIUM LACTATE
     Dosage: 500 ML, UNK
     Route: 051
     Dates: start: 20160521, end: 20160521
  2. INTRALIPOS [Concomitant]
     Active Substance: SOYBEAN OIL
     Dosage: 100 ML, UNK
     Route: 051
     Dates: start: 20160516, end: 20160516
  3. ELIETEN [Concomitant]
     Active Substance: METOCLOPRAMIDE
     Dosage: 1 DF, UNK
     Route: 051
     Dates: start: 20160515, end: 20160515
  4. ELIETEN [Concomitant]
     Active Substance: METOCLOPRAMIDE
     Dosage: 1 DF, UNK
     Route: 051
     Dates: start: 20160527, end: 20160527
  5. ATARAX-P [Concomitant]
     Active Substance: HYDROXYZINE HYDROCHLORIDE
     Dosage: 1 DF, UNK
     Route: 051
     Dates: start: 20160516, end: 20160516
  6. ATARAX-P [Concomitant]
     Active Substance: HYDROXYZINE HYDROCHLORIDE
     Dosage: 2 DF, UNK
     Route: 051
     Dates: start: 20160523, end: 20160523
  7. ATARAX-P [Concomitant]
     Active Substance: HYDROXYZINE HYDROCHLORIDE
     Dosage: 2 DF, UNK
     Route: 051
     Dates: start: 20160530, end: 20160530
  8. NAUZELIN [Concomitant]
     Active Substance: DOMPERIDONE
     Dosage: 3 DF, PRN
     Route: 054
     Dates: start: 20160515, end: 20160515
  9. NAUZELIN [Concomitant]
     Active Substance: DOMPERIDONE
     Dosage: 5 DF, PRN
     Route: 054
     Dates: start: 20160517, end: 20160517
  10. MYOCOR [Concomitant]
     Active Substance: NITROGLYCERIN
     Dosage: 100 ML, UNK
     Route: 051
     Dates: start: 20160530, end: 20160530
  11. ASPARA POTASSIUM [Concomitant]
     Active Substance: POTASSIUM ASPARTATE
     Dosage: 0.9 G, UNK
     Route: 048
     Dates: start: 20160507, end: 20160509
  12. METLIGINE [Concomitant]
     Active Substance: MIDODRINE HYDROCHLORIDE
     Dosage: 2 MG, UNK
     Route: 048
     Dates: start: 20160427, end: 20160524
  13. BFLUID [Concomitant]
     Active Substance: AMINO ACIDS\DEXTROSE\ELECTROLYTES NOS\VITAMINS
     Dosage: 1000 ML, UNK
     Route: 051
     Dates: start: 20160523, end: 20160523
  14. BUSCOPAN [Concomitant]
     Active Substance: BUTYLSCOPOLAMINE BROMIDE
     Dosage: 1 DF, UNK
     Route: 051
     Dates: start: 20160517, end: 20160517
  15. SERENACE [Concomitant]
     Active Substance: HALOPERIDOL
     Dosage: 1 DF, UNK
     Route: 051
     Dates: start: 20160529, end: 20160529
  16. SERENACE [Concomitant]
     Active Substance: HALOPERIDOL
     Dosage: 2 DF, UNK
     Route: 051
     Dates: start: 20160530, end: 20160530
  17. ATARAX-P [Concomitant]
     Active Substance: HYDROXYZINE HYDROCHLORIDE
     Dosage: 1 DF, UNK
     Route: 051
     Dates: start: 20160520, end: 20160520
  18. ATARAX-P [Concomitant]
     Active Substance: HYDROXYZINE HYDROCHLORIDE
     Dosage: 3 DF, UNK
     Route: 051
     Dates: start: 20160524, end: 20160524
  19. CEFMETAZOLE NA [Concomitant]
     Active Substance: CEFMETAZOLE
     Dosage: 1.5 G, UNK
     Route: 051
     Dates: start: 20160523, end: 20160523
  20. HEPARIN SODIUM. [Concomitant]
     Active Substance: HEPARIN SODIUM
     Dosage: 2.5 DF, UNK
     Route: 051
     Dates: start: 20160525, end: 20160525
  21. NEUROTROPIN [Concomitant]
     Active Substance: NEUROTROPIN
     Dosage: 1 DF, UNK
     Route: 051
     Dates: start: 20160524, end: 20160524
  22. NEUROTROPIN [Concomitant]
     Active Substance: NEUROTROPIN
     Dosage: 3 DF, UNK
     Route: 051
     Dates: start: 20160528, end: 20160528
  23. NEUROTROPIN [Concomitant]
     Active Substance: NEUROTROPIN
     Dosage: 1 DF, UNK
     Route: 051
     Dates: start: 20160529, end: 20160529
  24. NEUROTROPIN [Concomitant]
     Active Substance: NEUROTROPIN
     Dosage: 2 DF, UNK
     Route: 051
     Dates: start: 20160530, end: 20160530
  25. NAUZELIN [Concomitant]
     Active Substance: DOMPERIDONE
     Dosage: 10 DF, PRN
     Route: 054
     Dates: start: 20160519, end: 20160519
  26. CALONAL [Concomitant]
     Active Substance: ACETAMINOPHEN
     Dosage: 2400 MG, UNK
     Route: 048
     Dates: start: 20160525
  27. INTRALIPOS [Concomitant]
     Active Substance: SOYBEAN OIL
     Dosage: 100 ML, UNK
     Route: 051
     Dates: start: 20160527, end: 20160527
  28. INTRALIPOS [Concomitant]
     Active Substance: SOYBEAN OIL
     Dosage: 200 ML, UNK
     Route: 051
     Dates: start: 20160528, end: 20160528
  29. OMEPRAZOLE. [Concomitant]
     Active Substance: OMEPRAZOLE
     Dosage: 2 DF, UNK
     Route: 051
     Dates: start: 20160523, end: 20160523
  30. HEPARIN SODIUM. [Concomitant]
     Active Substance: HEPARIN SODIUM
     Dosage: 2.6 DF, UNK
     Route: 051
     Dates: start: 20160526, end: 20160526
  31. NEUROTROPIN [Concomitant]
     Active Substance: NEUROTROPIN
     Dosage: 1 DF, UNK
     Route: 051
     Dates: start: 20160515, end: 20160515
  32. BIOFERMIN R [Concomitant]
     Active Substance: BACILLUS SUBTILIS\LACTOBACILLUS ACIDOPHILUS\STREPTOCOCCUS FAECAIS
     Dosage: 3 DF, UNK
     Route: 048
     Dates: start: 20160427, end: 20160509
  33. SODIUM CHLORIDE BAXTER [Concomitant]
     Dosage: 1000 ML, UNK
     Route: 051
     Dates: start: 20160524, end: 20160524
  34. LANSOPRAZOLE OD [Suspect]
     Active Substance: LANSOPRAZOLE
     Dosage: 15 MG, UNK
     Route: 048
     Dates: start: 20160429, end: 20160524
  35. BESACOLIN [Concomitant]
     Active Substance: BETHANECHOL CHLORIDE
     Dosage: 45 MG, UNK
     Route: 048
     Dates: start: 20160503, end: 20160523
  36. LYRICA [Concomitant]
     Active Substance: PREGABALIN
     Dosage: 75 MG, UNK
     Route: 048
     Dates: start: 20160510, end: 20160516
  37. AMOBANTES [Concomitant]
     Dosage: 7.5 MG, PRN
     Route: 048
     Dates: start: 20160518, end: 20160518
  38. BFLUID [Concomitant]
     Active Substance: AMINO ACIDS\DEXTROSE\ELECTROLYTES NOS\VITAMINS
     Dosage: 1000 ML, UNK
     Route: 051
     Dates: start: 20160526, end: 20160526
  39. ELIETEN [Concomitant]
     Active Substance: METOCLOPRAMIDE
     Dosage: 1 DF, UNK
     Route: 051
     Dates: start: 20160522, end: 20160522
  40. BUSCOPAN [Concomitant]
     Active Substance: BUTYLSCOPOLAMINE BROMIDE
     Dosage: 1 DF, UNK
     Route: 051
     Dates: start: 20160514, end: 20160514
  41. SERENACE [Concomitant]
     Active Substance: HALOPERIDOL
     Dosage: 1 DF, UNK
     Route: 051
     Dates: start: 20160523, end: 20160523
  42. ATARAX-P [Concomitant]
     Active Substance: HYDROXYZINE HYDROCHLORIDE
     Dosage: 1 DF, UNK
     Route: 051
     Dates: start: 20160526, end: 20160526
  43. NEUROTROPIN [Concomitant]
     Active Substance: NEUROTROPIN
     Dosage: 1 DF, UNK
     Route: 051
     Dates: start: 20160517, end: 20160517
  44. NEUROTROPIN [Concomitant]
     Active Substance: NEUROTROPIN
     Dosage: 2 DF, UNK
     Route: 051
     Dates: start: 20160522, end: 20160522
  45. LASIX [Concomitant]
     Active Substance: FUROSEMIDE
     Dosage: 1 DF, UNK
     Route: 051
     Dates: start: 20160524, end: 20160524
  46. JANUVIA [Suspect]
     Active Substance: SITAGLIPTIN PHOSPHATE
     Dosage: UNK
     Route: 048
     Dates: start: 20160602, end: 20160610
  47. TAZOPIPE [Suspect]
     Active Substance: PIPERACILLIN SODIUM\TAZOBACTAM SODIUM
     Dosage: 1 DF, UNK
     Route: 042
     Dates: start: 20160523, end: 20160523
  48. WARFARIN [Concomitant]
     Active Substance: WARFARIN
     Dosage: 1.5 MG, UNK
     Route: 048
     Dates: start: 20160507, end: 20160523
  49. DEPAKENE [Concomitant]
     Active Substance: VALPROIC ACID
     Dosage: 400 MG, UNK
     Route: 048
     Dates: start: 20160426, end: 20160523
  50. BFLUID [Concomitant]
     Active Substance: AMINO ACIDS\DEXTROSE\ELECTROLYTES NOS\VITAMINS
     Dosage: 500 ML, UNK
     Route: 051
     Dates: start: 20160521, end: 20160521
  51. LACTEC [Concomitant]
     Active Substance: CALCIUM CHLORIDE ANHYDROUS\POTASSIUM CHLORIDE\SODIUM CHLORIDE\SODIUM LACTATE
     Dosage: 500 ML, UNK
     Route: 051
     Dates: start: 20160516, end: 20160516
  52. LACTEC [Concomitant]
     Active Substance: CALCIUM CHLORIDE ANHYDROUS\POTASSIUM CHLORIDE\SODIUM CHLORIDE\SODIUM LACTATE
     Dosage: 2500 ML, UNK
     Route: 051
     Dates: start: 20160523, end: 20160523
  53. ATARAX-P [Concomitant]
     Active Substance: HYDROXYZINE HYDROCHLORIDE
     Dosage: 1 DF, UNK
     Route: 051
     Dates: start: 20160522, end: 20160522
  54. VASOLAN [Concomitant]
     Active Substance: VERAPAMIL HYDROCHLORIDE
     Dosage: 1 DF, UNK
     Route: 051
     Dates: start: 20160517, end: 20160517
  55. NEUROTROPIN [Concomitant]
     Active Substance: NEUROTROPIN
     Dosage: 2 DF, UNK
     Route: 051
     Dates: start: 20160525, end: 20160525
  56. SODIUM CHLORIDE BAXTER [Concomitant]
     Dosage: 500 ML, UNK
     Route: 051
     Dates: start: 20160523, end: 20160523
  57. CALONAL [Concomitant]
     Active Substance: ACETAMINOPHEN
     Dosage: 2400 MG, UNK
     Route: 048
     Dates: start: 20160518, end: 20160523
  58. NITROPEN [Concomitant]
     Active Substance: NITROGLYCERIN
     Dosage: 0.3 MG, PRN
     Route: 060
     Dates: start: 20160525, end: 20160525
  59. BFLUID [Concomitant]
     Active Substance: AMINO ACIDS\DEXTROSE\ELECTROLYTES NOS\VITAMINS
     Dosage: 500 ML, UNK
     Route: 051
     Dates: start: 20160516, end: 20160516
  60. INTRALIPOS [Concomitant]
     Active Substance: SOYBEAN OIL
     Dosage: 200 ML, UNK
     Route: 051
     Dates: start: 20160520, end: 20160521
  61. SERENACE [Concomitant]
     Active Substance: HALOPERIDOL
     Dosage: 1 DF, UNK
     Route: 051
     Dates: start: 20160526, end: 20160526
  62. HEPARIN SODIUM. [Concomitant]
     Active Substance: HEPARIN SODIUM
     Dosage: 1.5 DF, UNK
     Route: 051
     Dates: start: 20160523, end: 20160523
  63. HEPARIN SODIUM. [Concomitant]
     Active Substance: HEPARIN SODIUM
     Dosage: 3 DF, UNK
     Route: 051
     Dates: start: 20160524, end: 20160524
  64. KCL [Concomitant]
     Active Substance: POTASSIUM CHLORIDE
     Dosage: 1 DF, UNK
     Route: 051
     Dates: start: 20160523, end: 20160523
  65. JANUVIA [Suspect]
     Active Substance: SITAGLIPTIN PHOSPHATE
     Dosage: 12.5 MG, UNK
     Route: 048
     Dates: start: 20160324, end: 20160423
  66. UBRETID [Concomitant]
     Active Substance: DISTIGMINE BROMIDE
     Dosage: 5 MG, UNK
     Route: 048
     Dates: start: 20160503, end: 20160517
  67. VASOLAN [Concomitant]
     Active Substance: VERAPAMIL HYDROCHLORIDE
     Dosage: 40 MG, UNK
     Route: 048
     Dates: start: 20160425, end: 20160523
  68. NEUROTROPIN [Concomitant]
     Active Substance: NEUROTROPIN
     Dosage: 16 IU, UNK
     Route: 048
     Dates: start: 20160506, end: 20160523
  69. NOVAMIN (PROCHLORPERAZINE MALEATE) [Concomitant]
     Active Substance: PROCHLORPERAZINE MALEATE
     Dosage: 15 MG, UNK
     Route: 048
     Dates: start: 20160518, end: 20160519
  70. LACTEC [Concomitant]
     Active Substance: CALCIUM CHLORIDE ANHYDROUS\POTASSIUM CHLORIDE\SODIUM CHLORIDE\SODIUM LACTATE
     Dosage: 500 ML, UNK
     Route: 051
     Dates: start: 20160525, end: 20160525
  71. ELIETEN [Concomitant]
     Active Substance: METOCLOPRAMIDE
     Dosage: 2 DF, UNK
     Route: 051
     Dates: start: 20160514, end: 20160514
  72. ELIETEN [Concomitant]
     Active Substance: METOCLOPRAMIDE
     Dosage: 1 DF, UNK
     Route: 051
     Dates: start: 20160517, end: 20160517
  73. ATARAX-P [Concomitant]
     Active Substance: HYDROXYZINE HYDROCHLORIDE
     Dosage: 1 DF, UNK
     Route: 051
     Dates: start: 20160529, end: 20160529
  74. NEUROTROPIN [Concomitant]
     Active Substance: NEUROTROPIN
     Dosage: 2 DF, UNK
     Route: 051
     Dates: start: 20160516, end: 20160516
  75. ATROPINE SULFATE. [Concomitant]
     Active Substance: ATROPINE SULFATE
     Dosage: 0.5 DF, UNK
     Route: 051
     Dates: start: 20160523, end: 20160523
  76. MYOCOR [Concomitant]
     Active Substance: NITROGLYCERIN
     Dosage: 1 DF, PRN
     Route: 060
     Dates: start: 20160530, end: 20160530
  77. MOHRUS TAPE [Concomitant]
     Active Substance: KETOPROFEN
     Dosage: 1 DF, UNK
     Route: 061
     Dates: start: 20160526
  78. JANUVIA [Suspect]
     Active Substance: SITAGLIPTIN PHOSPHATE
     Dosage: 50 MG, UNK
     Route: 048
     Dates: start: 20160502, end: 20160524
  79. TAZOPIPE [Suspect]
     Active Substance: PIPERACILLIN SODIUM\TAZOBACTAM SODIUM
     Dosage: 4 DF, UNK
     Route: 042
     Dates: start: 20160524, end: 20160524
  80. VASOLAN [Concomitant]
     Active Substance: VERAPAMIL HYDROCHLORIDE
     Dosage: 20 MG, UNK
     Route: 048
     Dates: start: 20160527
  81. WARFARIN [Concomitant]
     Active Substance: WARFARIN
     Dosage: 1.5 MG, UNK
     Route: 048
     Dates: start: 20160526
  82. NIFELANTERN CR [Concomitant]
     Active Substance: NIFEDIPINE
     Dosage: 40 MG, UNK
     Route: 048
     Dates: start: 20160507, end: 20160523
  83. ELIETEN [Concomitant]
     Active Substance: METOCLOPRAMIDE
     Dosage: 15 MG, UNK
     Route: 048
     Dates: start: 20160516, end: 20160518
  84. LACTEC [Concomitant]
     Active Substance: CALCIUM CHLORIDE ANHYDROUS\POTASSIUM CHLORIDE\SODIUM CHLORIDE\SODIUM LACTATE
     Dosage: 1000 ML, UNK
     Route: 051
     Dates: start: 20160524, end: 20160524
  85. ATARAX-P [Concomitant]
     Active Substance: HYDROXYZINE HYDROCHLORIDE
     Dosage: 2 DF, UNK
     Route: 051
     Dates: start: 20160517, end: 20160517
  86. VASOLAN [Concomitant]
     Active Substance: VERAPAMIL HYDROCHLORIDE
     Dosage: 1 DF, UNK
     Route: 051
     Dates: start: 20160526, end: 20160526
  87. NEUROTROPIN [Concomitant]
     Active Substance: NEUROTROPIN
     Dosage: 1 DF, UNK
     Route: 051
     Dates: start: 20160510, end: 20160510
  88. ACELIO [Concomitant]
     Active Substance: ACETAMINOPHEN
     Dosage: 0.6 DF, UNK
     Route: 051
     Dates: start: 20160524, end: 20160524
  89. LASIX [Concomitant]
     Active Substance: FUROSEMIDE
     Dosage: 1 DF, UNK
     Route: 051
     Dates: start: 20160530, end: 20160530
  90. VASOLAN [Concomitant]
     Active Substance: VERAPAMIL HYDROCHLORIDE
     Dosage: 40 MG, UNK
     Route: 048
     Dates: start: 20160528
  91. NEXIUM [Concomitant]
     Active Substance: ESOMEPRAZOLE MAGNESIUM
     Dosage: 20 MG, UNK
     Route: 048
     Dates: start: 20160530
  92. BFLUID [Concomitant]
     Active Substance: AMINO ACIDS\DEXTROSE\ELECTROLYTES NOS\VITAMINS
     Dosage: 1000 ML, UNK
     Route: 051
     Dates: start: 20160515, end: 20160515

REACTIONS (2)
  - Pneumonia aspiration [Recovered/Resolved]
  - Interstitial lung disease [Recovering/Resolving]

NARRATIVE: CASE EVENT DATE: 20160523
